FAERS Safety Report 6201475-8 (Version None)
Quarter: 2009Q2

REPORT INFORMATION
  Report Type: 
  Country: None (occurrence: None)
  Receive Date: 20090526
  Receipt Date: 20090513
  Transmission Date: 20091009
  Serious: Yes (Death, Hospitalization)
  Sender: FDA-Public Use
  Company Number: MX-ROCHE-633004

PATIENT
  Age: 85 Year
  Sex: Female

DRUGS (2)
  1. XELODA [Suspect]
     Indication: COLORECTAL CANCER
     Dosage: FREQUENCY : 6QD
     Route: 048
     Dates: start: 20090424, end: 20090427
  2. OXALIPLATIN [Concomitant]
     Indication: COLORECTAL CANCER
     Dosage: FREQUENCY : SINGLE DOSE
     Route: 042
     Dates: start: 20090423, end: 20090423

REACTIONS (4)
  - ANAEMIA [None]
  - LETHARGY [None]
  - MUCOSAL INFLAMMATION [None]
  - PANCYTOPENIA [None]
